FAERS Safety Report 4807751-5 (Version None)
Quarter: 2005Q4

REPORT INFORMATION
  Report Type: 
  Country: None (occurrence: None)
  Receive Date: 20051019
  Receipt Date: 20051006
  Transmission Date: 20060501
  Serious: Yes (Death)
  Sender: FDA-Public Use
  Company Number: BR-2005-020712

PATIENT
  Sex: Female

DRUGS (9)
  1. BETASERON [Suspect]
     Indication: MULTIPLE SCLEROSIS
     Dosage: 8 MIU, SUBCUTANEOUS
     Route: 058
     Dates: end: 20051004
  2. CORGARD [Concomitant]
  3. MODURETIC (AMILORIDE HYDROCHLORIDE) [Concomitant]
  4. PAMELOR [Concomitant]
  5. TEGRETOL (CARBAMZAEPINE) [Concomitant]
  6. ASPIRIN [Concomitant]
  7. ROHYPNOL (FLUNITRAZEPAM) [Concomitant]
  8. SINVASTACOR (SIMVASTATIN) [Concomitant]
  9. CALCIUM (CALCIUM) [Concomitant]

REACTIONS (1)
  - ACUTE MYOCARDIAL INFARCTION [None]
